FAERS Safety Report 7250915-4 (Version None)
Quarter: 2011Q1

REPORT INFORMATION
  Report Type: 
  Country: None (occurrence: None)
  Receive Date: 20110128
  Receipt Date: 20110119
  Transmission Date: 20110831
  Serious: Yes (Other)
  Sender: FDA-Public Use
  Company Number: A0908748A

PATIENT
  Sex: Female

DRUGS (1)
  1. PAXIL [Suspect]
     Route: 048
     Dates: start: 19970101

REACTIONS (7)
  - HALLUCINATION, VISUAL [None]
  - MENTAL IMPAIRMENT [None]
  - HAEMORRHAGIC ANAEMIA [None]
  - FATIGUE [None]
  - HALLUCINATION, AUDITORY [None]
  - FIBROMYALGIA [None]
  - ABNORMAL BEHAVIOUR [None]
